FAERS Safety Report 20633639 (Version 1)
Quarter: 2022Q1

REPORT INFORMATION
  Report Type: Report from Study
  Country: CZ (occurrence: CZ)
  Receive Date: 20220324
  Receipt Date: 20220324
  Transmission Date: 20220423
  Serious: Yes (Hospitalization)
  Sender: FDA-Public Use
  Company Number: CZ-TAKEDA-CZ201616534

PATIENT
  Age: 10 Year
  Sex: Male

DRUGS (2)
  1. IDURSULFASE [Suspect]
     Active Substance: IDURSULFASE
     Indication: Mucopolysaccharidosis II
     Dosage: 0.35 MILLIGRAM/KILOGRAM, 1/WEEK
     Route: 042
     Dates: start: 20111216
  2. IDURSULFASE [Suspect]
     Active Substance: IDURSULFASE
     Dosage: 0.35 MILLIGRAM/KILOGRAM, 1/WEEK
     Route: 042
     Dates: start: 20090114, end: 20171231

REACTIONS (1)
  - Mucopolysaccharidosis II [Recovered/Resolved]

NARRATIVE: CASE EVENT DATE: 20160801
